FAERS Safety Report 6635125-3 (Version None)
Quarter: 2010Q1

REPORT INFORMATION
  Report Type: 
  Country: None (occurrence: None)
  Receive Date: 20100315
  Receipt Date: 20100304
  Transmission Date: 20100710
  Serious: Yes (Other)
  Sender: FDA-Public Use
  Company Number: PHHY2010BR05132

PATIENT
  Age: 86 Year
  Sex: Male

DRUGS (2)
  1. FORASEQ [Suspect]
     Dosage: BID
     Dates: end: 20090501
  2. FORASEQ [Suspect]
     Dosage: UNK
     Dates: start: 20100129

REACTIONS (2)
  - HAEMATOCHEZIA [None]
  - TREATMENT NONCOMPLIANCE [None]
